FAERS Safety Report 6596143-7 (Version None)
Quarter: 2010Q1

REPORT INFORMATION
  Report Type: 
  Country: None (occurrence: None)
  Receive Date: 20100216
  Receipt Date: 20100204
  Transmission Date: 20100710
  Serious: Yes (Other)
  Sender: FDA-Public Use
  Company Number: SPV1-2010-00212

PATIENT
  Age: 14 Year
  Sex: Male
  Weight: 81.6 kg

DRUGS (5)
  1. INTUNIV [Suspect]
     Indication: ATTENTION DEFICIT/HYPERACTIVITY DISORDER
     Dosage: 2 MG, 1X/DAY:QD, ORAL; 3 MG, 1X/DAY:QD, ORAL; 4 MG, 1X/DAY:QD, ORAL
     Route: 048
     Dates: start: 20091201, end: 20091231
  2. INTUNIV [Suspect]
     Indication: ATTENTION DEFICIT/HYPERACTIVITY DISORDER
     Dosage: 2 MG, 1X/DAY:QD, ORAL; 3 MG, 1X/DAY:QD, ORAL; 4 MG, 1X/DAY:QD, ORAL
     Route: 048
     Dates: start: 20100101, end: 20100106
  3. INTUNIV [Suspect]
     Indication: ATTENTION DEFICIT/HYPERACTIVITY DISORDER
     Dosage: 2 MG, 1X/DAY:QD, ORAL; 3 MG, 1X/DAY:QD, ORAL; 4 MG, 1X/DAY:QD, ORAL
     Route: 048
     Dates: start: 20100107
  4. CONCERTA (METHYLPHENIDATE HYDROCHLORIDE) TABLET [Concomitant]
  5. LEXAPRO [Concomitant]

REACTIONS (9)
  - DIZZINESS [None]
  - DYSPNOEA [None]
  - FALL [None]
  - HEAD INJURY [None]
  - INAPPROPRIATE SCHEDULE OF DRUG ADMINISTRATION [None]
  - PALPITATIONS [None]
  - SYNCOPE [None]
  - TREMOR [None]
  - VERTIGO [None]
